FAERS Safety Report 20520084 (Version 1)
Quarter: 2022Q1

REPORT INFORMATION
  Report Type: Spontaneous
  Country: ZA (occurrence: ZA)
  Receive Date: 20220225
  Receipt Date: 20220225
  Transmission Date: 20220423
  Serious: Yes (Other)
  Sender: FDA-Public Use
  Company Number: ZA-PFIZER INC-202200295870

PATIENT
  Age: 43 Year
  Sex: Female

DRUGS (2)
  1. METHOTREXATE [Suspect]
     Active Substance: METHOTREXATE
     Dosage: UNK (DOSE: 25)
     Dates: start: 202012
  2. SULFASALAZINE [Concomitant]
     Active Substance: SULFASALAZINE
     Dosage: DOSE: 1000, 2X/DAY
     Dates: start: 202111

REACTIONS (3)
  - Polyarthritis [Unknown]
  - Drug ineffective [Unknown]
  - Quality of life decreased [Unknown]
